FAERS Safety Report 15674445 (Version 1)
Quarter: 2018Q4

REPORT INFORMATION
  Report Type: Other
  Country: FI (occurrence: FI)
  Receive Date: 20181130
  Receipt Date: 20181130
  Transmission Date: 20190205
  Serious: Yes (Other)
  Sender: FDA-Public Use
  Company Number: FI-ASPEN-GLO2018FI012067

PATIENT
  Sex: Male

DRUGS (4)
  1. VELCADE [Suspect]
     Active Substance: BORTEZOMIB
     Indication: PLASMA CELL MYELOMA
     Dosage: ADDITIONAL INFO: 3 CYCLES
     Route: 065
  2. DEXAMETHASONE. [Suspect]
     Active Substance: DEXAMETHASONE
     Dosage: CONTINUED UNTIL BEGINNING OF 2016, AFTER THE PAUSE IN TREATMENT, ADDITIONAL INFO: 3 CYCLES
     Route: 065
     Dates: end: 2016
  3. DEXAMETHASONE. [Suspect]
     Active Substance: DEXAMETHASONE
     Indication: PLASMA CELL MYELOMA
     Dosage: ADDITIONAL INFO: 3 CYCLES
     Route: 065
  4. CYCLOPHOSPHAMIDE. [Suspect]
     Active Substance: CYCLOPHOSPHAMIDE
     Indication: PLASMA CELL MYELOMA
     Dosage: ADDITIONAL INFO: 3 CYCLES
     Route: 065

REACTIONS (1)
  - Neuropathy peripheral [Unknown]
